FAERS Safety Report 4304186-9 (Version None)
Quarter: 2004Q1

REPORT INFORMATION
  Report Type: 
  Country: None (occurrence: None)
  Receive Date: 20040224
  Receipt Date: 20040212
  Transmission Date: 20041129
  Serious: No
  Sender: FDA-Public Use
  Company Number: 2004AP00783

PATIENT
  Age: 59 Year
  Sex: Male

DRUGS (2)
  1. CARBOCAIN [Suspect]
     Indication: LOCAL ANAESTHESIA
     Dosage: 7 ML ONCE ED
     Route: 008
  2. EPINEPHRINE [Suspect]

REACTIONS (5)
  - ARTERIOSPASM CORONARY [None]
  - BLOOD PRESSURE DECREASED [None]
  - ELECTROCARDIOGRAM ST SEGMENT ABNORMAL [None]
  - ELECTROLYTE IMBALANCE [None]
  - HEART RATE DECREASED [None]
